FAERS Safety Report 7948979-5 (Version None)
Quarter: 2011Q4

REPORT INFORMATION
  Report Type: 
  Country: None (occurrence: None)
  Receive Date: 20111130
  Receipt Date: 20111121
  Transmission Date: 20120403
  Serious: Yes (Hospitalization, Other)
  Sender: FDA-Public Use
  Company Number: JP-PFIZER INC-2011234059

PATIENT
  Age: 76 Year
  Sex: Female

DRUGS (4)
  1. CANDESARTAN CILEXETIL [Concomitant]
     Indication: HYPERTENSION
     Dosage: 4 MG/DAY
     Route: 048
     Dates: start: 20090101, end: 20110601
  2. AMLODIPINE BESYLATE [Suspect]
     Indication: HYPERTENSION
     Dosage: 5 MG, DAILY
     Route: 048
     Dates: start: 20110401, end: 20110601
  3. MOBIC [Suspect]
     Indication: BACK PAIN
     Dosage: 10 MG, DAILY
     Route: 048
     Dates: start: 20110401, end: 20110601
  4. CRESTOR [Concomitant]
     Dosage: 2.5 MG/DAY
     Route: 048
     Dates: start: 20090101, end: 20110601

REACTIONS (2)
  - PNEUMONITIS [None]
  - PULMONARY EMBOLISM [None]
